FAERS Safety Report 9764638 (Version 1)
Quarter: 2013Q4

REPORT INFORMATION
  Report Type: Report from Study
  Country: US (occurrence: US)
  Receive Date: 20131217
  Receipt Date: 20131217
  Transmission Date: 20140711
  Serious: Yes (Other)
  Sender: FDA-Public Use
  Company Number: US-ROCHE-1317968

PATIENT
  Sex: Male
  Weight: 170.7 kg

DRUGS (8)
  1. NUTROPIN [Suspect]
     Indication: HYPOPITUITARISM
     Route: 058
  2. LEVOTHYROXINE [Concomitant]
     Route: 048
  3. HYDROCORTISONE [Concomitant]
     Dosage: 2 TABLETS IN MORNING AND 1 1, 1 1/2 TABLET IN EVENING
     Route: 048
  4. TESTOSTERONE CYPIONATE [Concomitant]
     Route: 030
  5. DESMOPRESSIN ACETATE [Concomitant]
     Route: 045
  6. PRILOSEC [Concomitant]
     Route: 065
  7. ZOFRAN [Concomitant]
     Route: 048
  8. BYSTOLIC [Concomitant]
     Route: 048

REACTIONS (2)
  - Gastroenteritis [Unknown]
  - Headache [Unknown]
